FAERS Safety Report 19758227 (Version 1)
Quarter: 2021Q3

REPORT INFORMATION
  Report Type: Report from Study
  Country: BR (occurrence: BR)
  Receive Date: 20210828
  Receipt Date: 20210828
  Transmission Date: 20211014
  Serious: Yes (Other)
  Sender: FDA-Public Use
  Company Number: BR-TAKEDA-2021TUS053658

PATIENT
  Sex: Male
  Weight: 30 kg

DRUGS (1)
  1. HEMO?8R [Suspect]
     Active Substance: ANTIHEMOPHILIC FACTOR, HUMAN RECOMBINANT
     Indication: FACTOR VIII DEFICIENCY
     Dosage: 1000 INTERNATIONAL UNIT, QOD
     Route: 050

REACTIONS (4)
  - Joint swelling [Recovered/Resolved]
  - Epistaxis [Recovered/Resolved]
  - Weight increased [Unknown]
  - Tooth extraction [Recovered/Resolved]
